FAERS Safety Report 6717764-4 (Version None)
Quarter: 2010Q2

REPORT INFORMATION
  Report Type: 
  Country: None (occurrence: None)
  Receive Date: 20100510
  Receipt Date: 20100430
  Transmission Date: 20101027
  Serious: Yes (Other)
  Sender: FDA-Public Use
  Company Number: GXKR2010US04905

PATIENT
  Age: 37 Year
  Sex: Female

DRUGS (2)
  1. AMOXICILLIN [Suspect]
     Dosage: 500 MG, UNK
     Route: 065
  2. EPINEPHRINE [Suspect]
     Dosage: 3 DF (DILUTED 1:100), THE THIRD DOSE UNDILUTED
     Route: 042

REACTIONS (15)
  - ABDOMINAL PAIN [None]
  - ACCIDENTAL OVERDOSE [None]
  - ACUTE CORONARY SYNDROME [None]
  - ALTERED STATE OF CONSCIOUSNESS [None]
  - ANAPHYLACTIC REACTION [None]
  - CHEST DISCOMFORT [None]
  - CIRCULATORY COLLAPSE [None]
  - ELECTROCARDIOGRAM ST SEGMENT DEPRESSION [None]
  - FLUSHING [None]
  - GENERALISED ERYTHEMA [None]
  - HYPOTENSION [None]
  - INCORRECT DOSE ADMINISTERED [None]
  - MYOCARDIAL ISCHAEMIA [None]
  - PRURITUS [None]
  - RESPIRATORY DISTRESS [None]
